FAERS Safety Report 7054669-6 (Version None)
Quarter: 2010Q4

REPORT INFORMATION
  Report Type: 
  Country: None (occurrence: None)
  Receive Date: 20101020
  Receipt Date: 20101014
  Transmission Date: 20110411
  Serious: Yes (Other)
  Sender: FDA-Public Use
  Company Number: US-PFIZER INC-2010112918

PATIENT
  Sex: Female
  Weight: 77 kg

DRUGS (7)
  1. DEPO-MEDROL [Suspect]
     Indication: DERMATITIS CONTACT
     Dosage: 80 MG, SINGLE
     Dates: start: 20100408, end: 20100408
  2. DEPO-MEDROL [Suspect]
     Indication: ECZEMA
  3. ALPRAZOLAM [Suspect]
     Dosage: 0.25 MG, Q 6 HOURS
  4. ALPRAZOLAM [Suspect]
     Dosage: 0.25 MG Q 8 HOURS (TAPERED)
  5. CELEXA [Suspect]
     Indication: DEPRESSION
     Dosage: UNK
     Dates: start: 20100401, end: 20100101
  6. BENADRYL [Concomitant]
     Indication: HYPERSENSITIVITY
     Dosage: 25 MG, 1-2 CAPS AS NIGHT AS NEEDED
     Route: 048
  7. CLARITIN [Concomitant]
     Indication: HYPERSENSITIVITY
     Dosage: 10 MG, 1X/DAY

REACTIONS (6)
  - DEPRESSION [None]
  - DRUG INEFFECTIVE [None]
  - DYSPNOEA [None]
  - HEART RATE IRREGULAR [None]
  - VOMITING [None]
  - WITHDRAWAL SYNDROME [None]
